FAERS Safety Report 7174817-7 (Version None)
Quarter: 2010Q4

REPORT INFORMATION
  Report Type: 
  Country: None (occurrence: None)
  Receive Date: 20101219
  Receipt Date: 20100420
  Transmission Date: 20110411
  Serious: No
  Sender: FDA-Public Use
  Company Number: US-AMGEN-KDL403724

PATIENT

DRUGS (4)
  1. ENBREL [Suspect]
     Indication: RHEUMATOID ARTHRITIS
     Dosage: 50 MG, QWK
     Route: 058
     Dates: start: 20090525
  2. METHOTREXATE [Concomitant]
     Dosage: 5 MG, 3 TIMES/WK
     Route: 048
  3. PREDNISONE [Concomitant]
  4. CELECOXIB [Concomitant]

REACTIONS (4)
  - ALOPECIA [None]
  - ARTHRALGIA [None]
  - HAEMOGLOBIN DECREASED [None]
  - WEIGHT LOSS POOR [None]
